FAERS Safety Report 13648482 (Version 1)
Quarter: 2017Q2

REPORT INFORMATION
  Report Type: Spontaneous
  Country: FR (occurrence: FR)
  Receive Date: 20170613
  Receipt Date: 20170613
  Transmission Date: 20170830
  Serious: Yes (Other)
  Sender: FDA-Public Use
  Company Number: FR-PFIZER INC-2017253227

PATIENT
  Sex: Female

DRUGS (2)
  1. ATORVASTATINE PFIZER [Suspect]
     Active Substance: ATORVASTATIN
     Dosage: 30 MG, DAILY
  2. ATORVASTATINE PFIZER [Suspect]
     Active Substance: ATORVASTATIN
     Dosage: 20 MG, DAILY
     Dates: start: 2015

REACTIONS (5)
  - Transaminases increased [Unknown]
  - Gamma-glutamyltransferase increased [Unknown]
  - Biliary colic [Unknown]
  - Cholelithiasis [Unknown]
  - Laboratory test abnormal [Unknown]

NARRATIVE: CASE EVENT DATE: 201705
